FAERS Safety Report 13719310 (Version 1)
Quarter: 2017Q3

REPORT INFORMATION
  Report Type: Spontaneous
  Country: US (occurrence: US)
  Receive Date: 20170705
  Receipt Date: 20170705
  Transmission Date: 20171127
  Serious: No
  Sender: FDA-Public Use
  Company Number: US-PERRIGO-17US003549

PATIENT
  Sex: Female

DRUGS (2)
  1. LOPERAMIDE HCL [Suspect]
     Active Substance: LOPERAMIDE HYDROCHLORIDE
     Indication: DIARRHOEA
     Dosage: 4 MG AFTER FIRST LOOSE STOOL, 2 MG AFTER EACH SUBSEQUENT LOOSE STOOL
     Route: 048
     Dates: start: 201704, end: 201704
  2. LOPERAMIDE HCL [Suspect]
     Active Substance: LOPERAMIDE HYDROCHLORIDE
     Dosage: 4 MG AFTER FIRST LOOSE STOOL, 2 MG AFTER EACH SUBSEQUENT LOOSE STOOL
     Route: 048
     Dates: start: 20170416, end: 20170416

REACTIONS (1)
  - Faeces discoloured [Recovered/Resolved]

NARRATIVE: CASE EVENT DATE: 20170419
